FAERS Safety Report 5334787-0 (Version None)
Quarter: 2007Q2

REPORT INFORMATION
  Report Type: 
  Country: None (occurrence: None)
  Receive Date: 20070525
  Receipt Date: 20070515
  Transmission Date: 20071010
  Serious: Yes (Hospitalization)
  Sender: FDA-Public Use
  Company Number: JP-ROCHE-493699

PATIENT
  Age: 52 Year
  Sex: Male

DRUGS (2)
  1. ANEXATE TAB [Suspect]
     Indication: REVERSAL OF SEDATION
     Route: 042
     Dates: start: 20070122, end: 20070122
  2. SILECE [Concomitant]
     Indication: ENDOSCOPY
     Dosage: PATIENT RECEIVED IT WITH SALINE SOLUTION OF 20 ML
     Route: 042

REACTIONS (2)
  - HYPOTENSION [None]
  - PHOTOPHOBIA [None]
